FAERS Safety Report 4415556-2 (Version None)
Quarter: 2004Q3

REPORT INFORMATION
  Report Type: 
  Country: None (occurrence: None)
  Receive Date: 20040804
  Receipt Date: 20040726
  Transmission Date: 20050211
  Serious: Yes (Hospitalization, Other)
  Sender: FDA-Public Use
  Company Number: GB-MERCK-0407GBR00266

PATIENT
  Age: 59 Year
  Sex: Female

DRUGS (3)
  1. FOSAMAX [Suspect]
     Route: 048
     Dates: start: 20040201, end: 20040615
  2. CALCIUM (UNSPECIFIED) [Concomitant]
     Route: 065
  3. CHOLECALCIFEROL [Concomitant]
     Route: 065

REACTIONS (1)
  - VITREOUS FLOATERS [None]
